FAERS Safety Report 18108358 (Version 2)
Quarter: 2020Q4

REPORT INFORMATION
  Report Type: Spontaneous
  Country: AR (occurrence: AR)
  Receive Date: 20200803
  Receipt Date: 20201009
  Transmission Date: 20210113
  Serious: Yes (Other)
  Sender: FDA-Public Use
  Company Number: AR-AMGEN-ARGSP2020124544

PATIENT
  Age: 68 Year
  Sex: Female

DRUGS (2)
  1. ENBREL [Suspect]
     Active Substance: ETANERCEPT
     Dosage: 50 MG, WEEKLY
     Route: 065
  2. ENBREL [Suspect]
     Active Substance: ETANERCEPT
     Indication: RHEUMATOID ARTHRITIS
     Dosage: 50 MG, WEEKLY
     Route: 065
     Dates: start: 20101008

REACTIONS (10)
  - Cerebrovascular accident [Unknown]
  - Feeling of despair [Unknown]
  - Pain [Not Recovered/Not Resolved]
  - Malaise [Unknown]
  - Visual impairment [Not Recovered/Not Resolved]
  - Somatic symptom disorder [Unknown]
  - Dysstasia [Unknown]
  - Speech disorder [Unknown]
  - Motor dysfunction [Unknown]
  - Gait disturbance [Unknown]
